FAERS Safety Report 5074355-1 (Version None)
Quarter: 2006Q3

REPORT INFORMATION
  Report Type: 
  Country: None (occurrence: None)
  Receive Date: 20060803
  Receipt Date: 20060727
  Transmission Date: 20061208
  Serious: Yes (Hospitalization)
  Sender: FDA-Public Use
  Company Number: 2006EU002050

PATIENT
  Age: 63 Year
  Sex: Male
  Weight: 58.5 kg

DRUGS (12)
  1. PROGRAF [Suspect]
     Indication: LIVER TRANSPLANT
     Dosage: SEE IMAGE
     Route: 048
     Dates: start: 20060518
  2. PROGRAF [Suspect]
     Indication: LIVER TRANSPLANT
     Dosage: SEE IMAGE
     Route: 048
     Dates: start: 20060710
  3. CELLCEPT [Concomitant]
  4. HYDROCORTISONE (HYDROCORTISONE HYDROGEN SUCCINATE) [Concomitant]
  5. LEVOTHYROXINE SODIUM [Concomitant]
  6. CIFLOX (CIPROFLOXACIN HYDROCHLORIDE) [Concomitant]
  7. INVANZ (ERTAPENEM SODIUM) [Concomitant]
  8. LOVENOX [Concomitant]
  9. ASPIRIN [Concomitant]
  10. ATENOLOL [Concomitant]
  11. OMEPRAZOLE [Concomitant]
  12. NEXIUM [Concomitant]

REACTIONS (11)
  - CONFUSIONAL STATE [None]
  - CREATININE RENAL CLEARANCE DECREASED [None]
  - DELIRIUM [None]
  - DISORIENTATION [None]
  - DRUG ADMINISTRATION ERROR [None]
  - EMOTIONAL DISORDER [None]
  - HYPOMANIA [None]
  - INCORRECT ROUTE OF DRUG ADMINISTRATION [None]
  - MANIA [None]
  - MENTAL DISORDER [None]
  - TREATMENT NONCOMPLIANCE [None]
